FAERS Safety Report 8106534 (Version 2)
Quarter: 2012Q4

REPORT INFORMATION
  Report Type: 
  Country: US (occurrence: US)
  Receive Date: 20110825
  Receipt Date: 20121130
  Transmission Date: 20130627
  Serious: Yes (Hospitalization)
  Sender: FDA-Public Use
  Company Number: US-BAYER-2011-074979

PATIENT
  Age: 30 Year
  Sex: Female

DRUGS (6)
  1. YAZ [Suspect]
  2. YASMIN [Suspect]
  3. ALBUTEROL [Concomitant]
     Indication: ASTHMA
     Dosage: 2 puff(s), Q 4 hours
  4. DUAC [Concomitant]
     Indication: ACNE
  5. DOXYCYCLINE [Concomitant]
     Indication: ACNE
     Dosage: 100 mg, QD
  6. TORADOL [Concomitant]

REACTIONS (2)
  - Pulmonary embolism [None]
  - Injury [None]
